FAERS Safety Report 7250735-0 (Version None)
Quarter: 2011Q1

REPORT INFORMATION
  Report Type: 
  Country: None (occurrence: None)
  Receive Date: 20110128
  Receipt Date: 20110125
  Transmission Date: 20110831
  Serious: Yes (Other)
  Sender: FDA-Public Use
  Company Number: JP-ROXANE LABORATORIES, INC.-2011-RO-00106RO

PATIENT
  Age: 28 Year
  Sex: Female

DRUGS (2)
  1. ENDOXANA [Suspect]
     Indication: WEGENER'S GRANULOMATOSIS
     Route: 048
  2. PREDNISOLONE [Suspect]
     Indication: WEGENER'S GRANULOMATOSIS
     Route: 048

REACTIONS (1)
  - BRONCHOPLEURAL FISTULA [None]
